FAERS Safety Report 8572139-0 (Version None)
Quarter: 2012Q2

REPORT INFORMATION
  Report Type: 
  Country: None (occurrence: None)
  Receive Date: 20120418
  Receipt Date: 20100928
  Transmission Date: 20120825
  Serious: Yes (Hospitalization)
  Sender: FDA-Public Use
  Company Number: PHHY2010US64547

PATIENT
  Age: 48 Year
  Sex: Female

DRUGS (2)
  1. METOPROLOL TARTRATE [Concomitant]
  2. DIOVAN HCT [Suspect]
     Dosage: 160/12.5 MG

REACTIONS (4)
  - PANCREATITIS [None]
  - BACK PAIN [None]
  - ABDOMINAL PAIN UPPER [None]
  - FEELING ABNORMAL [None]
